FAERS Safety Report 13195089 (Version 1)
Quarter: 2017Q1

REPORT INFORMATION
  Report Type: Spontaneous
  Country: JP (occurrence: JP)
  Receive Date: 20170207
  Receipt Date: 20170207
  Transmission Date: 20170428
  Serious: Yes (Hospitalization)
  Sender: FDA-Public Use
  Company Number: GXJP2017JP000514

PATIENT
  Age: 74 Year
  Sex: Male

DRUGS (12)
  1. PYRAZINAMIDE. [Suspect]
     Active Substance: PYRAZINAMIDE
     Indication: PULMONARY TUBERCULOSIS
     Route: 065
  2. PYRAZINAMIDE. [Suspect]
     Active Substance: PYRAZINAMIDE
     Indication: PNEUMONIA BACTERIAL
  3. ISONIAZID. [Suspect]
     Active Substance: ISONIAZID
     Indication: PULMONARY TUBERCULOSIS
     Route: 065
  4. METHOTREXATE. [Concomitant]
     Active Substance: METHOTREXATE
     Indication: RHEUMATOID ARTHRITIS
     Route: 065
  5. ISONIAZID. [Suspect]
     Active Substance: ISONIAZID
     Indication: PNEUMONIA BACTERIAL
  6. MEROPENEM. [Concomitant]
     Active Substance: MEROPENEM
     Indication: PRODUCT USED FOR UNKNOWN INDICATION
     Route: 065
  7. RIFAMPICIN CAPSULES [Suspect]
     Active Substance: RIFAMPIN
     Indication: PNEUMONIA BACTERIAL
  8. PREDNISOLON [Concomitant]
     Active Substance: PREDNISOLONE
     Indication: RHEUMATOID ARTHRITIS
     Route: 065
  9. ADALIMUMAB [Concomitant]
     Active Substance: ADALIMUMAB
     Indication: PRODUCT USED FOR UNKNOWN INDICATION
     Route: 065
  10. RIFAMPICIN CAPSULES [Suspect]
     Active Substance: RIFAMPIN
     Indication: PULMONARY TUBERCULOSIS
     Dosage: UNK
     Route: 048
  11. ETHAMBUTOL [Suspect]
     Active Substance: ETHAMBUTOL HYDROCHLORIDE
     Indication: PULMONARY TUBERCULOSIS
     Route: 065
  12. ETHAMBUTOL [Suspect]
     Active Substance: ETHAMBUTOL HYDROCHLORIDE
     Indication: PNEUMONIA BACTERIAL

REACTIONS (1)
  - Paradoxical drug reaction [Unknown]
